FAERS Safety Report 5521253-2 (Version None)
Quarter: 2007Q4

REPORT INFORMATION
  Report Type: 
  Country: None (occurrence: None)
  Receive Date: 20071119
  Receipt Date: 20070924
  Transmission Date: 20080405
  Serious: Yes (Hospitalization, Other)
  Sender: FDA-Public Use
  Company Number: US-ASTRAZENECA-2007UW16973

PATIENT
  Age: 33 Year
  Sex: Male
  Weight: 96.4 kg

DRUGS (7)
  1. SEROQUEL [Suspect]
     Indication: BIPOLAR DISORDER
     Route: 048
     Dates: start: 20010101, end: 20070301
  2. ABILIFY [Concomitant]
     Route: 048
     Dates: start: 20030101
  3. GEODON [Concomitant]
     Route: 048
     Dates: start: 20030101, end: 20040101
  4. HALDOL [Concomitant]
     Route: 065
     Dates: start: 19920101, end: 19940101
  5. NAVANE [Concomitant]
     Route: 048
  6. RISPERDAL [Concomitant]
     Route: 048
  7. THORAZINE [Concomitant]

REACTIONS (10)
  - BLOOD CHOLESTEROL INCREASED [None]
  - DIABETES MELLITUS [None]
  - DIABETIC KETOACIDOSIS [None]
  - LIVER DISORDER [None]
  - OBESITY [None]
  - OSTEONECROSIS [None]
  - PNEUMONIA [None]
  - SUICIDAL IDEATION [None]
  - SUICIDE ATTEMPT [None]
  - WEIGHT INCREASED [None]
